FAERS Safety Report 21646941 (Version 1)
Quarter: 2022Q4

REPORT INFORMATION
  Report Type: Report from Study
  Country: IT (occurrence: IT)
  Receive Date: 20221127
  Receipt Date: 20221127
  Transmission Date: 20230112
  Serious: Yes (Other)
  Sender: FDA-Public Use
  Company Number: None

PATIENT
  Age: 16 Year
  Sex: Male

DRUGS (9)
  1. VINCRISTINE SULFATE [Suspect]
     Active Substance: VINCRISTINE SULFATE
     Indication: Non-Hodgkin^s lymphoma
     Dosage: 2 MG/DAY ON 07/25, 08/01, 08/08 AND 08/16/22, DURATION: 22 DAYS
     Route: 065
     Dates: start: 20220725, end: 20220816
  2. METHOTREXATE [Suspect]
     Active Substance: METHOTREXATE
     Indication: Non-Hodgkin^s lymphoma
     Dosage: 20 MILLIGRAM DAILY; 20 MG/DAY, THERAPY END DATE: NASK
     Route: 065
     Dates: start: 20220914
  3. METHOTREXATE [Suspect]
     Active Substance: METHOTREXATE
     Dosage: 12 MG ON 08/24 AND 08/31/22, DURATION: 7 DAYS
     Route: 065
     Dates: start: 20220824, end: 20220831
  4. CYCLOPHOSPHAMIDE [Suspect]
     Active Substance: CYCLOPHOSPHAMIDE
     Indication: Non-Hodgkin^s lymphoma
     Dosage: 1950 MG
     Route: 065
     Dates: start: 20220822, end: 20220822
  5. CYTARABINE [Suspect]
     Active Substance: CYTARABINE
     Indication: Non-Hodgkin^s lymphoma
     Dosage: 148 MG/DAY FROM 08/24 TO 08/27/22 148 MG/DAY FROM 08/30 TO 09/02/22, DURATION: 9 DAS
     Route: 065
     Dates: start: 20220824, end: 20220902
  6. PURINETHOL [Suspect]
     Active Substance: MERCAPTOPURINE
     Indication: Non-Hodgkin^s lymphoma
     Dosage: 50 MILLIGRAM DAILY; 50 MG/DAY, THERAPY END DATE: NASK
     Route: 065
     Dates: start: 20220914
  7. THIOGUANINE ANHYDROUS [Suspect]
     Active Substance: THIOGUANINE ANHYDROUS
     Indication: Non-Hodgkin^s lymphoma
     Dosage: 114 MILLIGRAM DAILY; 114 MG/DAY, DURATION: 11 DAYS
     Route: 065
     Dates: start: 20220822, end: 20220902
  8. ONCASPAR [Suspect]
     Active Substance: PEGASPARGASE
     Indication: Non-Hodgkin^s lymphoma
     Dosage: 3150 MG
     Route: 065
     Dates: start: 20220725, end: 20220725
  9. DECADRON [Concomitant]
     Active Substance: DEXAMETHASONE
     Indication: Product used for unknown indication
     Dosage: 18 MG/DAY FROM DAY 18/07 TO DAY 08/08/22, 9 MG/DAY FROM DAY 08/08 TO DAY 11/08/22, 4.5 MG/DAY FROM D
     Dates: start: 20220718, end: 20220817

REACTIONS (3)
  - Hyperbilirubinaemia [Recovered/Resolved]
  - Leukopenia [Recovered/Resolved]
  - Anaemia [Recovered/Resolved]

NARRATIVE: CASE EVENT DATE: 20220822
